FAERS Safety Report 9647506 (Version 2)
Quarter: 2013Q4

REPORT INFORMATION
  Report Type: Spontaneous
  Country: US (occurrence: US)
  Receive Date: 20131028
  Receipt Date: 20131028
  Transmission Date: 20140711
  Serious: Yes (Other)
  Sender: FDA-Public Use
  Company Number: US-ROCHE-1284339

PATIENT
  Age: 15 Year
  Sex: Male
  Weight: 95 kg

DRUGS (7)
  1. NUTROPIN [Suspect]
     Indication: GROWTH HORMONE DEFICIENCY
     Route: 058
     Dates: start: 20130614
  2. NUTROPIN [Suspect]
     Indication: HYPOPITUITARISM
  3. HYDROCORTISONE [Concomitant]
     Indication: HYPOPITUITARISM
     Route: 048
     Dates: start: 2012
  4. LEVOTHYROXINE [Concomitant]
  5. ATENOLOL [Concomitant]
     Indication: TACHYCARDIA
     Route: 048
  6. DESMOPRESSIN [Concomitant]
     Route: 048
     Dates: start: 2012
  7. TESTOSTERONE [Concomitant]
     Route: 030
     Dates: start: 20130614

REACTIONS (2)
  - Type 2 diabetes mellitus [Not Recovered/Not Resolved]
  - Obesity [Unknown]
